FAERS Safety Report 9385784 (Version 1)
Quarter: 2013Q3

REPORT INFORMATION
  Report Type: Spontaneous
  Country: US (occurrence: US)
  Receive Date: 20130705
  Receipt Date: 20130705
  Transmission Date: 20140515
  Serious: Yes (Disabling)
  Sender: FDA-Public Use
  Company Number: US-MERCK-1307USA001488

PATIENT
  Sex: Male

DRUGS (7)
  1. REMERON [Suspect]
     Indication: ANXIETY
     Route: 048
  2. CELEXA [Concomitant]
     Indication: ANXIETY
  3. TOPAMAX [Concomitant]
  4. NEURONTIN [Concomitant]
     Dosage: UNK
     Dates: start: 2001
  5. DEPAKOTE [Concomitant]
     Dosage: UNK
     Dates: start: 2001
  6. REGLAN [Concomitant]
     Dosage: UNK
     Dates: start: 2001
  7. WELLBUTRIN [Concomitant]

REACTIONS (9)
  - Suicidal ideation [Not Recovered/Not Resolved]
  - Depression [Not Recovered/Not Resolved]
  - Nausea [Unknown]
  - Headache [Unknown]
  - Crying [Unknown]
  - Asthenia [Not Recovered/Not Resolved]
  - Decreased interest [Not Recovered/Not Resolved]
  - Fatigue [Not Recovered/Not Resolved]
  - Decreased appetite [Not Recovered/Not Resolved]
